FAERS Safety Report 4665629-4 (Version None)
Quarter: 2005Q2

REPORT INFORMATION
  Report Type: 
  Country: None (occurrence: None)
  Receive Date: 20050517
  Receipt Date: 20050328
  Transmission Date: 20051028
  Serious: No
  Sender: FDA-Public Use
  Company Number: S05-USA-01669-01

PATIENT
  Age: 80 Year
  Sex: Male

DRUGS (9)
  1. NAMENDA [Suspect]
     Indication: AMNESIA
     Dosage: 5 MG BID PO
     Route: 048
     Dates: start: 20050324
  2. NAMENDA [Suspect]
     Indication: AMNESIA
     Dosage: 5 MG QD PO
     Route: 048
     Dates: start: 20050317, end: 20050323
  3. ARICEPT [Concomitant]
  4. NEXIUM [Concomitant]
  5. DIOVAN [Concomitant]
  6. TERAZOSIN [Concomitant]
  7. HYDROCHLOROTHIAZIDE [Concomitant]
  8. COUMADIN [Concomitant]
  9. ASPIRIN [Concomitant]

REACTIONS (1)
  - ABDOMINAL DISCOMFORT [None]
